FAERS Safety Report 8975902 (Version 1)
Quarter: 2012Q4

REPORT INFORMATION
  Report Type: 
  Country: US (occurrence: US)
  Receive Date: 20121219
  Receipt Date: 20121219
  Transmission Date: 20130627
  Serious: Yes (Death)
  Sender: FDA-Public Use
  Company Number: US-GLAXOSMITHKLINE-A1005811A

PATIENT
  Age: 95 Year
  Sex: Male

DRUGS (1)
  1. VOTRIENT [Suspect]
     Route: 048
     Dates: start: 20120809

REACTIONS (1)
  - Death [Fatal]
